FAERS Safety Report 23799326 (Version 1)
Quarter: 2024Q2

REPORT INFORMATION
  Report Type: Spontaneous
  Country: US (occurrence: US)
  Receive Date: 20240430
  Receipt Date: 20240430
  Transmission Date: 20240716
  Serious: Yes (Hospitalization, Other)
  Sender: FDA-Public Use
  Company Number: US-GRAVITIPHARMA-GRA-2404-US-LIT-0112

PATIENT
  Age: 43 Year
  Sex: Male
  Weight: 79 kg

DRUGS (4)
  1. FENOFIBRATE [Suspect]
     Active Substance: FENOFIBRATE
     Indication: Hyperlipidaemia
  2. INSULIN NOS [Concomitant]
     Active Substance: INSULIN NOS
     Indication: Product used for unknown indication
     Dosage: UNITS/KG/H DURING HOSPITAL DAYS 3-7
  3. INSULIN NOS [Concomitant]
     Active Substance: INSULIN NOS
     Dosage: THEN WAS REDUCED TO 0.1 UNITS/KG/H ON DAY 7
  4. INSULIN NOS [Concomitant]
     Active Substance: INSULIN NOS
     Dosage: ON DAY 9 AND TRANSITIONED TO SUBCUTANEOUS INSULIN AT 0.5  UNITS/KG/DAY
     Route: 058

REACTIONS (1)
  - Liver injury [Recovered/Resolved]
